FAERS Safety Report 16663442 (Version 1)
Quarter: 2019Q3

REPORT INFORMATION
  Report Type: Report from Study
  Country: US (occurrence: US)
  Receive Date: 20190802
  Receipt Date: 20190802
  Transmission Date: 20191004
  Serious: No
  Sender: FDA-Public Use
  Company Number: US-EXELIXIS-CABO-19020677

PATIENT
  Sex: Male
  Weight: 106.58 kg

DRUGS (12)
  1. SYNALAR [Concomitant]
     Active Substance: FLUOCINOLONE ACETONIDE
     Dosage: UNK
  2. LOVASTATIN. [Concomitant]
     Active Substance: LOVASTATIN
     Dosage: UNK
  3. COLACE [Concomitant]
     Active Substance: DOCUSATE SODIUM
     Dosage: UNK
  4. FIBERCON [Concomitant]
     Active Substance: CALCIUM POLYCARBOPHIL
     Dosage: UNK
  5. MULTIVITAMINS, COMBINATIONS [Concomitant]
     Active Substance: VITAMINS
     Dosage: UNK
  6. CABOMETYX [Suspect]
     Active Substance: CABOZANTINIB S-MALATE
     Dosage: 40 MG, QD
     Route: 048
  7. PANTOPRAZOLE SODIUM. [Concomitant]
     Active Substance: PANTOPRAZOLE SODIUM
     Dosage: UNK
  8. CABOMETYX [Suspect]
     Active Substance: CABOZANTINIB S-MALATE
     Indication: RENAL CANCER
     Dosage: 60 MG, QD
     Route: 048
     Dates: start: 20190222
  9. TRAMADOL HCL [Concomitant]
     Active Substance: TRAMADOL HYDROCHLORIDE
     Dosage: 50 MG, UNK
  10. ASPIRIN EC [Concomitant]
     Active Substance: ASPIRIN
     Dosage: UNK
  11. CITALOPRAM HYDROBROMIDE. [Concomitant]
     Active Substance: CITALOPRAM HYDROBROMIDE
     Dosage: UNK
  12. LOSARTAN POTASSIUM. [Concomitant]
     Active Substance: LOSARTAN POTASSIUM
     Dosage: UNK

REACTIONS (1)
  - Adverse drug reaction [Unknown]
